FAERS Safety Report 23752825 (Version 1)
Quarter: 2024Q2

REPORT INFORMATION
  Report Type: Spontaneous
  Country: US (occurrence: None)
  Receive Date: 20240417
  Receipt Date: 20240417
  Transmission Date: 20240716
  Serious: Yes (Death)
  Sender: FDA-Public Use
  Company Number: None

PATIENT
  Sex: Male

DRUGS (1)
  1. DROXIDOPA [Suspect]
     Active Substance: DROXIDOPA
     Indication: Parkinson^s disease
     Dosage: OTHER QUANTITY : TAKE 1 CAPSULE;?FREQUENCY : 3 TIMES A DAY;?
     Route: 048
     Dates: start: 20230706

REACTIONS (1)
  - Death [None]
